FAERS Safety Report 12796604 (Version 6)
Quarter: 2016Q4

REPORT INFORMATION
  Report Type: Report from Study
  Country: KR (occurrence: KR)
  Receive Date: 20160929
  Receipt Date: 20161207
  Transmission Date: 20170207
  Serious: Yes (Death, Hospitalization)
  Sender: FDA-Public Use
  Company Number: KR-PFIZER INC-2016119950

PATIENT
  Age: 67 Year
  Sex: Male
  Weight: 67 kg

DRUGS (6)
  1. MSB0010718C [Suspect]
     Active Substance: AVELUMAB
     Dosage: UNK
  2. MSB0010718C [Suspect]
     Active Substance: AVELUMAB
     Dosage: UNK
     Route: 042
     Dates: end: 20160211
  3. HYDROCORTISONE SODIUM SUCCINATE [Suspect]
     Active Substance: HYDROCORTISONE SODIUM SUCCINATE
     Dosage: 14 CC/HOUR
  4. MSB0010718C [Suspect]
     Active Substance: AVELUMAB
     Dosage: UNK
     Route: 042
  5. MSB0010718C [Suspect]
     Active Substance: AVELUMAB
     Indication: NON-SMALL CELL LUNG CANCER
     Dosage: 10 MG/KG, CYCLIC (ONCE EVERY 2 WEEKS)
     Route: 042
     Dates: start: 20160126
  6. MSB0010718C [Suspect]
     Active Substance: AVELUMAB
     Dosage: UNK
     Route: 042

REACTIONS (3)
  - Adrenal insufficiency [Recovered/Resolved]
  - Atrial fibrillation [Fatal]
  - Seizure [Fatal]

NARRATIVE: CASE EVENT DATE: 20160205
